FAERS Safety Report 13626319 (Version 1)
Quarter: 2017Q2

REPORT INFORMATION
  Report Type: Spontaneous
  Country: US (occurrence: US)
  Receive Date: 20170531
  Receipt Date: 20170531
  Transmission Date: 20170830
  Serious: Yes (Other)
  Sender: FDA-Public Use
  Company Number: US-ASTELLAS-1341629

PATIENT
  Sex: Female

DRUGS (6)
  1. MIACALCIN [Concomitant]
     Active Substance: CALCITONIN SALMON
  2. SYNTHROID [Concomitant]
     Active Substance: LEVOTHYROXINE SODIUM
  3. HYDROCHLOROTHIAZIDE. [Concomitant]
     Active Substance: HYDROCHLOROTHIAZIDE
  4. TARCEVA [Suspect]
     Active Substance: ERLOTINIB HYDROCHLORIDE
     Indication: LUNG NEOPLASM MALIGNANT
     Route: 048
     Dates: start: 20100909, end: 201401
  5. ACIPHEX [Concomitant]
     Active Substance: RABEPRAZOLE SODIUM
  6. PRAVACHOL [Concomitant]
     Active Substance: PRAVASTATIN SODIUM

REACTIONS (1)
  - Disease progression [Unknown]
